FAERS Safety Report 18264895 (Version 4)
Quarter: 2022Q2

REPORT INFORMATION
  Report Type: Spontaneous
  Country: FR (occurrence: FR)
  Receive Date: 20200915
  Receipt Date: 20220629
  Transmission Date: 20220721
  Serious: Yes (Hospitalization)
  Sender: FDA-Public Use
  Company Number: FR-JNJFOC-20200737962

PATIENT
  Age: 51 Year
  Sex: Male

DRUGS (3)
  1. CELLCEPT [Suspect]
     Active Substance: MYCOPHENOLATE MOFETIL
     Indication: Behcet^s syndrome
     Route: 065
     Dates: start: 2014, end: 2017
  2. INFLIXIMAB [Suspect]
     Active Substance: INFLIXIMAB
     Indication: Behcet^s syndrome
     Route: 065
     Dates: start: 20181207, end: 20190517
  3. REMICADE [Suspect]
     Active Substance: INFLIXIMAB
     Indication: Product used for unknown indication
     Route: 042

REACTIONS (20)
  - Staphylococcal infection [Unknown]
  - Endocarditis [Unknown]
  - Diarrhoea [Unknown]
  - Rectal haemorrhage [Unknown]
  - Off label use [Unknown]
  - Behcet^s syndrome [Unknown]
  - Supraventricular tachycardia [Unknown]
  - Implantable defibrillator insertion [Unknown]
  - Impaired work ability [Unknown]
  - Syncope [Unknown]
  - Hypovolaemic shock [Unknown]
  - Myocardial necrosis [Unknown]
  - Vomiting [Unknown]
  - Urinary tract infection [Unknown]
  - Hepatic cytolysis [Unknown]
  - Liver abscess [Unknown]
  - Malaise [Unknown]
  - Weight increased [Unknown]
  - Clostridium difficile colitis [Unknown]
  - Acute kidney injury [Unknown]

NARRATIVE: CASE EVENT DATE: 20190529
